FAERS Safety Report 7703529-3 (Version None)
Quarter: 2011Q3

REPORT INFORMATION
  Report Type: 
  Country: None (occurrence: None)
  Receive Date: 20110823
  Receipt Date: 20110822
  Transmission Date: 20111222
  Serious: Yes (Hospitalization)
  Sender: FDA-Public Use
  Company Number: JP-PFIZER INC-2011193147

PATIENT
  Age: 17 Year
  Sex: Female

DRUGS (3)
  1. CABERGOLINE [Suspect]
     Dosage: UNK
     Route: 048
  2. RITODRINE HYDROCHLORIDE [Suspect]
     Dosage: 5 MG, 3X/DAY
     Route: 048
  3. RITODRINE HYDROCHLORIDE [Suspect]
     Indication: THREATENED LABOUR
     Dosage: 50 UG/MIN, DAILY
     Route: 041

REACTIONS (1)
  - RHABDOMYOLYSIS [None]
